FAERS Safety Report 24832658 (Version 1)
Quarter: 2025Q1

REPORT INFORMATION
  Report Type: Report from Study
  Country: EU (occurrence: EU)
  Receive Date: 20250110
  Receipt Date: 20250110
  Transmission Date: 20250408
  Serious: Yes (Other)
  Sender: BAUSCH AND LOMB
  Company Number: DE-SA-SAC20211121000283

PATIENT
  Age: 70 Year
  Sex: Female
  Weight: 55.5 kg

DRUGS (32)
  1. DEXAMETHASONE [Suspect]
     Active Substance: DEXAMETHASONE
     Indication: Plasma cell myeloma refractory
     Dosage: 40 MG, QW
     Route: 048
     Dates: start: 20210804, end: 20210804
  2. DEXAMETHASONE [Suspect]
     Active Substance: DEXAMETHASONE
     Dosage: 40 MG, QW
     Route: 042
     Dates: start: 20210909, end: 20210923
  3. DEXAMETHASONE [Suspect]
     Active Substance: DEXAMETHASONE
     Dosage: 20 MG, QW
     Route: 042
     Dates: start: 20211007, end: 20211021
  4. DEXAMETHASONE [Suspect]
     Active Substance: DEXAMETHASONE
     Dosage: 20 MG, QW
     Route: 042
     Dates: start: 20211104, end: 20211111
  5. DEXAMETHASONE [Suspect]
     Active Substance: DEXAMETHASONE
     Dosage: 20 MG, QW
     Route: 065
     Dates: start: 20211216
  6. DEXAMETHASONE [Suspect]
     Active Substance: DEXAMETHASONE
     Dosage: 10 MG, QW
     Route: 065
     Dates: start: 20211202
  7. DEXAMETHASONE [Suspect]
     Active Substance: DEXAMETHASONE
     Dosage: 4 MG, QW
     Route: 065
     Dates: start: 20220104
  8. DEXAMETHASONE [Suspect]
     Active Substance: DEXAMETHASONE
     Dosage: 20 MG, QW
     Route: 042
     Dates: start: 20211007, end: 20211022
  9. DEXAMETHASONE [Suspect]
     Active Substance: DEXAMETHASONE
     Dosage: 20 MG, QW
     Route: 042
     Dates: start: 20211104, end: 20211119
  10. CARFILZOMIB [Suspect]
     Active Substance: CARFILZOMIB
     Indication: Plasma cell myeloma refractory
     Dosage: 56 MG/M2, QW
     Route: 065
     Dates: start: 20210804, end: 20210804
  11. CARFILZOMIB [Suspect]
     Active Substance: CARFILZOMIB
     Dosage: 43 MG, QW
     Route: 042
     Dates: start: 20211202
  12. CARFILZOMIB [Suspect]
     Active Substance: CARFILZOMIB
     Route: 065
     Dates: start: 20210826, end: 20210826
  13. CARFILZOMIB [Suspect]
     Active Substance: CARFILZOMIB
     Dosage: 43 MG, QW
     Route: 065
     Dates: start: 20211007, end: 20211021
  14. CARFILZOMIB [Suspect]
     Active Substance: CARFILZOMIB
     Dosage: 43 MG, QW
     Route: 065
     Dates: start: 20210909, end: 20210923
  15. CARFILZOMIB [Suspect]
     Active Substance: CARFILZOMIB
     Dosage: 43 MG, QW
     Route: 065
     Dates: start: 20211104, end: 20211111
  16. CARFILZOMIB [Suspect]
     Active Substance: CARFILZOMIB
     Dosage: 56 MG/M2, QW
     Route: 065
     Dates: start: 20220104
  17. CARFILZOMIB [Suspect]
     Active Substance: CARFILZOMIB
     Dosage: 56 MG/M2, QW
     Route: 065
     Dates: start: 20211216
  18. CARFILZOMIB [Suspect]
     Active Substance: CARFILZOMIB
     Dosage: 43 MG, QW
     Route: 065
     Dates: start: 20211104, end: 20211119
  19. ISATUXIMAB [Suspect]
     Active Substance: ISATUXIMAB
     Indication: Plasma cell myeloma refractory
     Dosage: 10 MG/KG, QW
     Route: 042
     Dates: start: 20210804, end: 20210804
  20. ISATUXIMAB [Suspect]
     Active Substance: ISATUXIMAB
     Dosage: UNK UNK, QW
     Route: 065
     Dates: start: 20210826, end: 20210826
  21. ISATUXIMAB [Suspect]
     Active Substance: ISATUXIMAB
     Dosage: 10 MG/KG, BIW
     Route: 042
     Dates: start: 20211104, end: 20211104
  22. ISATUXIMAB [Suspect]
     Active Substance: ISATUXIMAB
     Dosage: 10 MG/KG, BIW
     Route: 042
     Dates: start: 20211007, end: 20211021
  23. ISATUXIMAB [Suspect]
     Active Substance: ISATUXIMAB
     Dosage: 10 MG, QW
     Route: 042
     Dates: start: 20211202
  24. ISATUXIMAB [Suspect]
     Active Substance: ISATUXIMAB
     Dosage: 10 MG/KG, BIW
     Route: 042
     Dates: start: 20210909, end: 20210923
  25. ISATUXIMAB [Suspect]
     Active Substance: ISATUXIMAB
     Dosage: 10 MG/KG, BIW
     Route: 042
     Dates: start: 20211104, end: 20211119
  26. ISATUXIMAB [Suspect]
     Active Substance: ISATUXIMAB
     Dosage: 10 MG/KG, BIW
     Route: 042
     Dates: start: 20211007, end: 20211022
  27. ISATUXIMAB [Suspect]
     Active Substance: ISATUXIMAB
     Dosage: 10MG/KG, BIW
     Route: 065
     Dates: start: 20211216
  28. ISATUXIMAB [Suspect]
     Active Substance: ISATUXIMAB
     Dosage: 10 MG/KG, BIW
     Route: 065
     Dates: start: 20220104
  29. DIMETHINDENE [Concomitant]
     Active Substance: DIMETHINDENE
     Indication: Premedication
     Route: 065
     Dates: start: 20210804
  30. PANTOPRAZOLE [Concomitant]
     Active Substance: PANTOPRAZOLE
     Indication: Premedication
     Route: 065
     Dates: start: 20210804
  31. DEXAMETHASONE [Concomitant]
     Active Substance: DEXAMETHASONE
     Indication: Premedication
     Route: 065
     Dates: start: 20210804
  32. PAMIDRONATE DISODIUM [Concomitant]
     Active Substance: PAMIDRONATE DISODIUM
     Indication: Product used for unknown indication
     Route: 065
     Dates: start: 20190318

REACTIONS (6)
  - Cataract [Recovering/Resolving]
  - Pyrexia [Recovered/Resolved]
  - Drug hypersensitivity [Recovered/Resolved]
  - Diarrhoea [Recovered/Resolved]
  - Bronchitis [Recovered/Resolved]
  - Bronchitis [Recovered/Resolved]

NARRATIVE: CASE EVENT DATE: 20210827
